FAERS Safety Report 11321036 (Version 1)
Quarter: 2015Q3

REPORT INFORMATION
  Report Type: Report from Study
  Country: US (occurrence: US)
  Receive Date: 20150729
  Receipt Date: 20150729
  Transmission Date: 20151125
  Serious: Yes (Other)
  Sender: FDA-Public Use
  Company Number: US-GILEAD-2015-0164730

PATIENT
  Age: 89 Year
  Sex: Female

DRUGS (2)
  1. RANOLAZINE [Suspect]
     Active Substance: RANOLAZINE
     Dosage: 500 MG, UNK
     Route: 048
     Dates: start: 2014
  2. RANOLAZINE [Suspect]
     Active Substance: RANOLAZINE
     Indication: PRODUCT USED FOR UNKNOWN INDICATION
     Dosage: 500 MG, QD, 2 1/2 TABS
     Route: 048

REACTIONS (9)
  - Malaise [Unknown]
  - Productive cough [Unknown]
  - Dizziness [Unknown]
  - Loss of consciousness [Unknown]
  - Off label use [Unknown]
  - Asthenia [Unknown]
  - Presyncope [Unknown]
  - Wrong technique in product usage process [Unknown]
  - Headache [Unknown]

NARRATIVE: CASE EVENT DATE: 2015
